FAERS Safety Report 18326693 (Version 2)
Quarter: 2020Q4

REPORT INFORMATION
  Report Type: Report from Study
  Country: BR (occurrence: BR)
  Receive Date: 20200929
  Receipt Date: 20201112
  Transmission Date: 20210113
  Serious: Yes (Life-Threatening, Other)
  Sender: FDA-Public Use
  Company Number: NVSC2020BR261041

PATIENT
  Age: 64 Year
  Sex: Female

DRUGS (4)
  1. SANDOSTATIN LAR DEPOT [Suspect]
     Active Substance: OCTREOTIDE ACETATE
     Dosage: UNK
     Route: 065
     Dates: start: 20020901
  2. SANDOSTATIN LAR DEPOT [Suspect]
     Active Substance: OCTREOTIDE ACETATE
     Dosage: UNK
     Route: 065
     Dates: start: 20020901
  3. SANDOSTATIN LAR DEPOT [Suspect]
     Active Substance: OCTREOTIDE ACETATE
     Dosage: UNK
     Route: 065
     Dates: start: 20200901
  4. SANDOSTATIN LAR DEPOT [Suspect]
     Active Substance: OCTREOTIDE ACETATE
     Indication: ACROMEGALY
     Dosage: UNK
     Route: 065
     Dates: start: 20020901

REACTIONS (21)
  - Syncope [Recovered/Resolved]
  - Cyanosis [Recovered/Resolved]
  - Movement disorder [Unknown]
  - Suspected COVID-19 [Recovered/Resolved]
  - Apathy [Unknown]
  - Fall [Unknown]
  - Diabetes mellitus [Not Recovered/Not Resolved]
  - Antipsychotic drug level below therapeutic [Unknown]
  - Wrong technique in product usage process [Unknown]
  - Bacterial infection [Unknown]
  - Sluggishness [Unknown]
  - Gait disturbance [Unknown]
  - Bipolar disorder [Unknown]
  - Malaise [Unknown]
  - Cyanosis [Unknown]
  - Malaise [Recovered/Resolved]
  - Needle issue [Unknown]
  - Mental disorder [Unknown]
  - Asthenia [Unknown]
  - Product storage error [Unknown]
  - Retching [Unknown]

NARRATIVE: CASE EVENT DATE: 202002
